FAERS Safety Report 5761772-7 (Version None)
Quarter: 2008Q2

REPORT INFORMATION
  Report Type: 
  Country: None (occurrence: None)
  Receive Date: 20080606
  Receipt Date: 20080530
  Transmission Date: 20081010
  Serious: Yes (Other)
  Sender: FDA-Public Use
  Company Number: US-PFIZER INC-2008046202

PATIENT
  Age: 78 Year
  Sex: Female
  Weight: 73.636 kg

DRUGS (10)
  1. LIPITOR [Suspect]
     Indication: MYOCARDIAL INFARCTION
     Dates: start: 20070921, end: 20080501
  2. ASPIRIN [Concomitant]
  3. LISINOPRIL [Concomitant]
  4. PROTONIX [Concomitant]
  5. ALL OTHER THERAPEUTIC PRODUCTS [Concomitant]
  6. LEXAPRO [Concomitant]
  7. COREG [Concomitant]
  8. QUINIDINE HCL [Concomitant]
  9. COLCHICINE [Concomitant]
  10. ALLOPURINOL [Concomitant]

REACTIONS (2)
  - BLOOD CREATINE PHOSPHOKINASE INCREASED [None]
  - LIMB DISCOMFORT [None]
